FAERS Safety Report 7647502-2 (Version None)
Quarter: 2011Q3

REPORT INFORMATION
  Report Type: 
  Country: None (occurrence: None)
  Receive Date: 20110801
  Receipt Date: 20110714
  Transmission Date: 20111222
  Serious: Yes (Death, Hospitalization)
  Sender: FDA-Public Use
  Company Number: US-GLAXOSMITHKLINE-A0870419A

PATIENT
  Age: 66 Year
  Sex: Male

DRUGS (6)
  1. ZANTAC [Concomitant]
  2. AVANDIA [Suspect]
     Indication: DIABETES MELLITUS
     Dosage: 8MG PER DAY
     Route: 048
     Dates: start: 20060101, end: 20090101
  3. ENALAPRIL MALEATE [Concomitant]
  4. ATENOLOL [Concomitant]
  5. GLYBURIDE [Concomitant]
  6. CRESTOR [Concomitant]

REACTIONS (5)
  - CARDIAC FAILURE CONGESTIVE [None]
  - CARDIOMYOPATHY [None]
  - MYOCARDIAL INFARCTION [None]
  - ATRIAL FIBRILLATION [None]
  - DEATH [None]
